FAERS Safety Report 13108806 (Version 1)
Quarter: 2017Q1

REPORT INFORMATION
  Report Type: Spontaneous
  Country: US (occurrence: US)
  Receive Date: 20170112
  Receipt Date: 20170112
  Transmission Date: 20170428
  Serious: No
  Sender: FDA-Public Use
  Company Number: US-LANTHEUS-LMI-2016-00033

PATIENT
  Age: 55 Year
  Sex: Male

DRUGS (2)
  1. CARDIOLITE [Suspect]
     Active Substance: TECHNETIUM TC-99M SESTAMIBI
     Indication: NUCLEAR MAGNETIC RESONANCE IMAGING HEART
     Route: 065
     Dates: start: 20160121, end: 20160121
  2. CARDIOLITE [Suspect]
     Active Substance: TECHNETIUM TC-99M SESTAMIBI
     Dosage: BETWEEN 26 MCI AND 36 MCI CARDIOLITE
     Route: 065
     Dates: start: 20160121, end: 20160121

REACTIONS (1)
  - Drug ineffective [Unknown]

NARRATIVE: CASE EVENT DATE: 20160121
